FAERS Safety Report 5752841-6 (Version None)
Quarter: 2008Q2

REPORT INFORMATION
  Report Type: 
  Country: None (occurrence: None)
  Receive Date: 20080529
  Receipt Date: 20080519
  Transmission Date: 20081010
  Serious: Yes (Other)
  Sender: FDA-Public Use
  Company Number: US-PFIZER INC-2008043530

PATIENT
  Sex: Female
  Weight: 58.1 kg

DRUGS (8)
  1. NEURONTIN [Suspect]
     Indication: NEUROPATHY PERIPHERAL
  2. LIPITOR [Suspect]
     Indication: BLOOD CHOLESTEROL INCREASED
     Dates: start: 20050101, end: 20080301
  3. ACCUPRIL [Suspect]
     Indication: HYPERTENSION
  4. PAXIL [Concomitant]
  5. HYDROCHLOROTHIAZIDE [Concomitant]
  6. VITAMIN B [Concomitant]
  7. FOLIC ACID [Concomitant]
  8. DRUG, UNSPECIFIED [Concomitant]

REACTIONS (4)
  - CHEST PAIN [None]
  - HEPATIC ENZYME INCREASED [None]
  - LOSS OF CONSCIOUSNESS [None]
  - SPHINCTER OF ODDI DYSFUNCTION [None]
